FAERS Safety Report 5483317-1 (Version None)
Quarter: 2007Q4

REPORT INFORMATION
  Report Type: 
  Country: None (occurrence: None)
  Receive Date: 20071012
  Receipt Date: 20071003
  Transmission Date: 20080405
  Serious: Yes (Other)
  Sender: FDA-Public Use
  Company Number: PHEH2007US07543

PATIENT
  Sex: Female

DRUGS (1)
  1. TEGRETOL-XR [Suspect]
     Indication: MOOD SWINGS
     Dosage: 800 MG, BID
     Route: 048
     Dates: start: 20010101, end: 20070906

REACTIONS (12)
  - BONE PAIN [None]
  - CONTUSION [None]
  - CONVULSION [None]
  - HAEMORRHAGE [None]
  - HAEMORRHAGIC DIATHESIS [None]
  - MYALGIA [None]
  - NEURALGIA [None]
  - PERIPHERAL NERVE DESTRUCTION [None]
  - PLATELET COUNT DECREASED [None]
  - PLATELET COUNT INCREASED [None]
  - PLATELET MORPHOLOGY ABNORMAL [None]
  - RED BLOOD CELL COUNT DECREASED [None]
